FAERS Safety Report 9980262 (Version 1)
Quarter: 2014Q1

REPORT INFORMATION
  Report Type: Spontaneous
  Country: IN (occurrence: IN)
  Receive Date: 20140307
  Receipt Date: 20140307
  Transmission Date: 20141002
  Serious: Yes (Death)
  Sender: FDA-Public Use
  Company Number: IN-ROCHE-1359899

PATIENT
  Age: 60 Year
  Sex: Female

DRUGS (5)
  1. METALYSE [Suspect]
     Indication: MYOCARDIAL INFARCTION
     Route: 042
     Dates: start: 20140227, end: 20140227
  2. METALYSE [Suspect]
     Indication: CARDIOGENIC SHOCK
  3. ECOSPRIN [Concomitant]
  4. GLYCIPHAGE SR [Concomitant]
  5. CLOPILET [Concomitant]

REACTIONS (1)
  - Myocardial rupture [Fatal]
